FAERS Safety Report 5426010-3 (Version None)
Quarter: 2007Q3

REPORT INFORMATION
  Report Type: 
  Country: None (occurrence: None)
  Receive Date: 20070824
  Receipt Date: 20070824
  Transmission Date: 20080115
  Serious: Yes (Hospitalization)
  Sender: FDA-Public Use
  Company Number: None

PATIENT
  Sex: Male

DRUGS (1)
  1. LODINE XL [Suspect]

REACTIONS (2)
  - AUTOIMMUNE HEPATITIS [None]
  - LIVER TRANSPLANT [None]
